FAERS Safety Report 6409534-1 (Version None)
Quarter: 2009Q4

REPORT INFORMATION
  Report Type: 
  Country: None (occurrence: None)
  Receive Date: 20091020
  Receipt Date: 20091020
  Transmission Date: 20100525
  Serious: No
  Sender: FDA-Public Use
  Company Number: None

PATIENT
  Sex: Male
  Weight: 85.7298 kg

DRUGS (1)
  1. LEVAQUIN [Suspect]
     Indication: BLOOD URINE PRESENT
     Dosage: 500 MG 1 PER DAY
     Dates: start: 20090827, end: 20090904

REACTIONS (2)
  - GAIT DISTURBANCE [None]
  - TENDON PAIN [None]
